FAERS Safety Report 9152938 (Version 1)
Quarter: 2013Q1

REPORT INFORMATION
  Report Type: Spontaneous
  Country: US (occurrence: US)
  Receive Date: 20130205
  Receipt Date: 20130205
  Transmission Date: 20140127
  Serious: Yes (Death, Other)
  Sender: FDA-Public Use
  Company Number: US-RB-044576-12

PATIENT
  Age: 51 Year
  Sex: Female

DRUGS (3)
  1. SUBOXONE FILM [Suspect]
     Dosage: SUBOXONE FILM
     Route: 065
     Dates: start: 20120902, end: 201209
  2. SUBOXONE FILM [Suspect]
     Indication: PAIN
     Dosage: SUBOXONE FILM
     Route: 065
     Dates: start: 20120902, end: 20120903
  3. MULTIVITAMINS [Concomitant]
     Indication: PROPHYLAXIS
     Dosage: DOSING DETAILS UNKNOWN
     Route: 065

REACTIONS (3)
  - Death [Fatal]
  - Off label use [Recovered/Resolved]
  - Therapy naive [Recovered/Resolved]
